FAERS Safety Report 7659872-X (Version None)
Quarter: 2011Q3

REPORT INFORMATION
  Report Type: 
  Country: None (occurrence: None)
  Receive Date: 20110805
  Receipt Date: 20110426
  Transmission Date: 20111222
  Serious: No
  Sender: FDA-Public Use
  Company Number: US-ABBOTT-11P-163-0716830-00

PATIENT
  Age: 29 Year
  Sex: Male
  Weight: 72.64 kg

DRUGS (4)
  1. DEPAKOTE ER [Suspect]
     Indication: CONVULSION
     Dates: start: 20000101
  2. DEPAKOTE ER [Suspect]
     Dosage: DEPAKOTE WHEN PATIENT WAS AN INFANT
  3. ZANAFLEX [Concomitant]
     Indication: MUSCLE SPASMS
  4. PHENOBARBITAL TAB [Concomitant]
     Indication: PRODUCT USED FOR UNKNOWN INDICATION
     Dosage: 32MG IN MORNING + 64 MG AT NIGHT

REACTIONS (1)
  - LYMPHADENOPATHY [None]
